FAERS Safety Report 8103842-4 (Version None)
Quarter: 2012Q1

REPORT INFORMATION
  Report Type: 
  Country: None (occurrence: None)
  Receive Date: 20120201
  Receipt Date: 20120120
  Transmission Date: 20120608
  Serious: Yes (Hospitalization, Other)
  Sender: FDA-Public Use
  Company Number: PHHY2012US001078

PATIENT
  Sex: Female
  Weight: 71 kg

DRUGS (18)
  1. MYFORTIC [Suspect]
     Dosage: 180 MG, UNK
     Route: 048
  2. NEXIUM [Concomitant]
     Indication: RENAL TRANSPLANT
     Dosage: 40 MG, BEFORE BREAKFAST
  3. OMEGA-3 FATTY ACIDS [Concomitant]
     Dosage: 1 DF, DAILY
     Route: 048
  4. HUMALOG [Concomitant]
     Dosage: UNK UKN, UNK
     Route: 057
  5. MYFORTIC [Suspect]
     Indication: RENAL TRANSPLANT
     Dosage: 5 DF, BID (180 MG)
     Route: 048
  6. NOVOLOG [Concomitant]
     Dosage: 25 U TWICE A DAY WITH MEALS AND 20 U BEFORE DINNER
     Route: 058
  7. ALLEGRA [Concomitant]
     Dosage: 180 MG, UNK
     Route: 048
  8. DELTASONE [Concomitant]
     Dosage: 1 DF, DAILY
     Route: 048
  9. PROGRAF [Concomitant]
     Dosage: 2 MG, BID
     Route: 048
  10. L-CARNITINE [Concomitant]
     Dosage: 500 MG, UNK
     Route: 048
  11. IMDUR [Concomitant]
     Dosage: 120 MG, BY MOUTH EVERY MORNING
     Route: 048
  12. POTASSIUM CHLORIDE [Concomitant]
     Dosage: 1 DF, DAILY
     Route: 048
  13. ULTRAM [Concomitant]
     Indication: PAIN
     Dosage: 1 DF, Q12H AS NEEDED
     Route: 048
  14. ROCALTROL [Concomitant]
     Dosage: 0.25 UG, UNK
     Route: 048
     Dates: start: 20111215
  15. LIPITOR [Concomitant]
     Dosage: 20 MG, UNK
     Route: 048
  16. LEVOCARNITINE [Concomitant]
     Dosage: 1 DF,
     Route: 048
  17. SINGULAIR [Concomitant]
     Dosage: 1 DF, DAILY
     Route: 048
  18. MAG-OX [Concomitant]
     Dosage: 400 MG, UNK
     Route: 048
     Dates: start: 20111215

REACTIONS (10)
  - CHEST PAIN [None]
  - ACUTE MYOCARDIAL INFARCTION [None]
  - ANAEMIA [None]
  - AORTIC VALVE SCLEROSIS [None]
  - CARDIAC FAILURE ACUTE [None]
  - CORONARY ARTERY DISEASE [None]
  - ACTIVATED PARTIAL THROMBOPLASTIN TIME PROLONGED [None]
  - VENTRICULAR HYPOKINESIA [None]
  - RENAL FAILURE CHRONIC [None]
  - PULMONARY HYPERTENSION [None]
